FAERS Safety Report 5723206-8 (Version None)
Quarter: 2008Q2

REPORT INFORMATION
  Report Type: 
  Country: None (occurrence: None)
  Receive Date: 20080425
  Receipt Date: 20080423
  Transmission Date: 20081010
  Serious: Yes (Death, Hospitalization)
  Sender: FDA-Public Use
  Company Number: 2008SP007642

PATIENT
  Age: 63 Year
  Sex: Female
  Weight: 55 kg

DRUGS (8)
  1. PEG-INTRON [Suspect]
     Indication: HEPATITIS C
     Dosage: 80 MCG;QW;
     Dates: start: 20070725, end: 20080211
  2. RIBAVIRIN [Suspect]
     Indication: HEPATITIS C
     Dosage: 750 MG;QD;
     Dates: start: 20070725, end: 20080211
  3. METFORMIN HCL [Concomitant]
  4. GLYBURIDE [Concomitant]
  5. LOSARTAN POTASSIUM [Concomitant]
  6. HYDROCHLOROTHIAZIDE [Concomitant]
  7. AETNOLOL [Concomitant]
  8. FOLIC ACID [Concomitant]

REACTIONS (1)
  - DEATH [None]
